FAERS Safety Report 19136167 (Version 1)
Quarter: 2021Q2

REPORT INFORMATION
  Report Type: Spontaneous
  Country: US (occurrence: US)
  Receive Date: 20210414
  Receipt Date: 20210414
  Transmission Date: 20210717
  Serious: Yes (Other)
  Sender: FDA-Public Use
  Company Number: US-PFIZER INC-2019016506

PATIENT
  Age: 37 Year
  Sex: Female

DRUGS (1)
  1. DEPO?PROVERA [Suspect]
     Active Substance: MEDROXYPROGESTERONE ACETATE
     Indication: MUSCLE SPASMS
     Dosage: UNK

REACTIONS (4)
  - Pain [Unknown]
  - Off label use [Unknown]
  - Drug effective for unapproved indication [Unknown]
  - Suicidal ideation [Unknown]
